FAERS Safety Report 7163690-9 (Version None)
Quarter: 2010Q4

REPORT INFORMATION
  Report Type: 
  Country: None (occurrence: None)
  Receive Date: 20101215
  Receipt Date: 20100527
  Transmission Date: 20110411
  Serious: Yes (Other)
  Sender: FDA-Public Use
  Company Number: KR-PFIZER INC-2010067112

PATIENT
  Age: 67 Year
  Sex: Male

DRUGS (2)
  1. LYRICA [Suspect]
     Dosage: 75 MG, UNK
     Route: 048
     Dates: start: 20100201, end: 20100401
  2. RANIBIZUMAB [Concomitant]
     Indication: RETINAL DISORDER
     Dosage: UNK
     Route: 031
     Dates: start: 20100201

REACTIONS (1)
  - PROSTATIC HAEMORRHAGE [None]
